FAERS Safety Report 15114901 (Version 1)
Quarter: 2018Q3

REPORT INFORMATION
  Report Type: Spontaneous
  Country: DE (occurrence: DE)
  Receive Date: 20180706
  Receipt Date: 20180706
  Transmission Date: 20181010
  Serious: Yes (Death, Other)
  Sender: FDA-Public Use
  Company Number: DE-AUROBINDO-AUR-APL-2017-03375

PATIENT
  Age: 71 Year
  Sex: Male

DRUGS (2)
  1. IBUPROFEN. [Suspect]
     Active Substance: IBUPROFEN
     Indication: OSTEOARTHRITIS
     Dosage: 600 MILLIGRAM
     Route: 048
  2. GINKGO BILOBA [Suspect]
     Active Substance: GINKGO
     Indication: DIZZINESS
     Dosage: LEAST 2 YEARS AND 6 MONTHS
     Route: 065

REACTIONS (2)
  - Cerebral haemorrhage [Fatal]
  - Labelled drug-drug interaction medication error [Fatal]
